FAERS Safety Report 6257680-8 (Version None)
Quarter: 2009Q3

REPORT INFORMATION
  Report Type: 
  Country: None (occurrence: None)
  Receive Date: 20090706
  Receipt Date: 20090623
  Transmission Date: 20100115
  Serious: Yes (Hospitalization, Other)
  Sender: FDA-Public Use
  Company Number: BR-AVENTIS-200916382GDDC

PATIENT
  Age: 36 Year
  Sex: Male
  Weight: 75 kg

DRUGS (3)
  1. LANTUS [Suspect]
     Dosage: DOSE: 38-40
     Route: 058
  2. HIDANTAL [Suspect]
     Indication: CONVULSION
     Route: 048
  3. NOVORAPID [Concomitant]
     Dosage: DOSE: ACCORDING TO GLYCEMIA
     Route: 058

REACTIONS (6)
  - ASTHENIA [None]
  - CONVULSION [None]
  - DRUG INEFFECTIVE [None]
  - HYPERGLYCAEMIA [None]
  - HYPOGLYCAEMIC COMA [None]
  - PRODUCT QUALITY ISSUE [None]
